FAERS Safety Report 17567146 (Version 1)
Quarter: 2020Q1

REPORT INFORMATION
  Report Type: Spontaneous
  Country: FR (occurrence: FR)
  Receive Date: 20200320
  Receipt Date: 20200320
  Transmission Date: 20200409
  Serious: Yes (Congenital Anomaly)
  Sender: FDA-Public Use
  Company Number: NVSC2020FR073389

PATIENT
  Sex: Male

DRUGS (4)
  1. RISPERIDONE. [Suspect]
     Active Substance: RISPERIDONE
     Indication: FOETAL EXPOSURE DURING PREGNANCY
     Dosage: MOTHER DOSE:  (2 MG, QD)
     Route: 064
     Dates: start: 20190615
  2. MIRTAZAPINE. [Suspect]
     Active Substance: MIRTAZAPINE
     Indication: FOETAL EXPOSURE DURING PREGNANCY
     Dosage: MOTHER DOSE: 45 MG, QD
     Route: 064
     Dates: start: 20190615, end: 20191206
  3. SERESTA [Suspect]
     Active Substance: OXAZEPAM
     Indication: FOETAL EXPOSURE DURING PREGNANCY
     Dosage: MOTHER DOSE: 20 MG, QD
     Route: 064
  4. ATARAX [Suspect]
     Active Substance: HYDROXYZINE HYDROCHLORIDE
     Indication: FOETAL EXPOSURE DURING PREGNANCY
     Dosage: MOTHER DOSE :50 MG, QD
     Route: 064
     Dates: start: 20190615, end: 20191108

REACTIONS (1)
  - Kidney enlargement [Not Recovered/Not Resolved]

NARRATIVE: CASE EVENT DATE: 20191204
